FAERS Safety Report 7703252-5 (Version None)
Quarter: 2011Q3

REPORT INFORMATION
  Report Type: 
  Country: None (occurrence: None)
  Receive Date: 20110823
  Receipt Date: 20110817
  Transmission Date: 20111222
  Serious: Yes (Life-Threatening, Hospitalization, Other)
  Sender: FDA-Public Use
  Company Number: US-PFIZER INC-2011190492

PATIENT
  Age: 27 Year
  Sex: Female

DRUGS (1)
  1. BENZONATATE [Suspect]
     Dosage: UNK
     Route: 042

REACTIONS (2)
  - INTENTIONAL DRUG MISUSE [None]
  - VENTRICULAR FIBRILLATION [None]
